FAERS Safety Report 13493301 (Version 4)
Quarter: 2017Q4

REPORT INFORMATION
  Report Type: Report from Study
  Country: US (occurrence: US)
  Receive Date: 20170427
  Receipt Date: 20171031
  Transmission Date: 20180320
  Serious: Yes (Hospitalization)
  Sender: FDA-Public Use
  Company Number: US-ACTELION-A-US2017-152860

PATIENT
  Age: 67 Year
  Sex: Female
  Weight: 86.17 kg

DRUGS (30)
  1. ALPHAGAN P [Concomitant]
     Active Substance: BRIMONIDINE TARTRATE
     Dosage: 1 DROP, UNK
     Route: 031
  2. ACIPHEX [Concomitant]
     Active Substance: RABEPRAZOLE SODIUM
     Dosage: 20 MG, UNK
  3. VITAMIN B12 [Concomitant]
     Active Substance: CYANOCOBALAMIN
  4. LISINOPRIL. [Concomitant]
     Active Substance: LISINOPRIL
  5. VITAMIN D3 [Concomitant]
     Active Substance: CHOLECALCIFEROL
  6. DORZOLAMIDE TIMOLOL [Concomitant]
     Active Substance: DORZOLAMIDE
     Dosage: UNK, BID
  7. CALCIUM [Concomitant]
     Active Substance: CALCIUM
  8. TRACLEER [Suspect]
     Active Substance: BOSENTAN
     Indication: PULMONARY ARTERIAL HYPERTENSION
     Dosage: 125 MG, BID
     Route: 048
     Dates: start: 2005
  9. CARISOPRODOL. [Concomitant]
     Active Substance: CARISOPRODOL
  10. ESTRADIOL. [Concomitant]
     Active Substance: ESTRADIOL
  11. REVATIO [Concomitant]
     Active Substance: SILDENAFIL CITRATE
  12. FLUTICASONE PROPIONATE. [Concomitant]
     Active Substance: FLUTICASONE PROPIONATE
  13. MULTIVITAMIN [Concomitant]
     Active Substance: VITAMINS
  14. ALBUTEROL. [Concomitant]
     Active Substance: ALBUTEROL
  15. PREDNISONE. [Concomitant]
     Active Substance: PREDNISONE
     Dosage: 10 MG, UNK
  16. NYSTATIN. [Concomitant]
     Active Substance: NYSTATIN
     Dosage: UNK, BID
  17. AMITRIPTYLINE [Concomitant]
     Active Substance: AMITRIPTYLINE
     Dosage: 50 MG, QPM
  18. TEMAZEPAM. [Concomitant]
     Active Substance: TEMAZEPAM
     Dosage: 15 MG, QPM
  19. LATANOPROST. [Concomitant]
     Active Substance: LATANOPROST
  20. ADVAIR HFA [Concomitant]
     Active Substance: FLUTICASONE PROPIONATE\SALMETEROL XINAFOATE
  21. NAPROXEN. [Concomitant]
     Active Substance: NAPROXEN
     Dosage: 500 MG, BID
  22. POTASSIUM [Concomitant]
     Active Substance: POTASSIUM
  23. VITAMIN D [Concomitant]
     Active Substance: CHOLECALCIFEROL
  24. ALLOPURINOL. [Concomitant]
     Active Substance: ALLOPURINOL
  25. BETOPTIC-S [Concomitant]
     Active Substance: BETAXOLOL HYDROCHLORIDE
  26. FLONASE [Concomitant]
     Active Substance: FLUTICASONE PROPIONATE
  27. ASPIRIN. [Concomitant]
     Active Substance: ASPIRIN
  28. AMLODIPINE [Concomitant]
     Active Substance: AMLODIPINE BESYLATE
  29. PROMETHAZINE - CODEINE [Concomitant]
     Active Substance: CODEINE\PROMETHAZINE
     Dosage: UNK, BID
  30. IRON [Concomitant]
     Active Substance: IRON
     Dosage: 65 MG, UNK

REACTIONS (6)
  - Cataract [Unknown]
  - Knee operation [Recovering/Resolving]
  - Cataract operation [Unknown]
  - Drug dose omission [Unknown]
  - Muscle operation [Unknown]
  - Arthritis infective [Recovered/Resolved]

NARRATIVE: CASE EVENT DATE: 20170417
